FAERS Safety Report 17151170 (Version 1)
Quarter: 2019Q4

REPORT INFORMATION
  Report Type: Spontaneous
  Country: US (occurrence: US)
  Receive Date: 20191213
  Receipt Date: 20191213
  Transmission Date: 20200122
  Serious: Yes (Hospitalization)
  Sender: FDA-Public Use
  Company Number: US-ROCHE-2496302

PATIENT
  Age: 88 Year
  Sex: Female
  Weight: 70 kg

DRUGS (1)
  1. ACTEMRA [Suspect]
     Active Substance: TOCILIZUMAB
     Indication: TEMPORAL ARTERITIS
     Route: 058
     Dates: start: 20190726, end: 20191201

REACTIONS (4)
  - Body height decreased [Unknown]
  - Cervical vertebral fracture [Unknown]
  - Neck pain [Unknown]
  - Spinal column injury [Unknown]

NARRATIVE: CASE EVENT DATE: 20191205
